FAERS Safety Report 8520860-2 (Version None)
Quarter: 2012Q3

REPORT INFORMATION
  Report Type: 
  Country: None (occurrence: None)
  Receive Date: 20120719
  Receipt Date: 20120710
  Transmission Date: 20120928
  Serious: Yes (Other)
  Sender: FDA-Public Use
  Company Number: JP-JNJFOC-20120702985

PATIENT
  Age: 39 Year
  Sex: Female

DRUGS (3)
  1. METHOTREXATE [Concomitant]
     Route: 048
  2. REMICADE [Suspect]
     Indication: RHEUMATOID ARTHRITIS
     Route: 042
     Dates: start: 20110622
  3. REMICADE [Suspect]
     Route: 042
     Dates: start: 20120509

REACTIONS (4)
  - PNEUMONIA [None]
  - NASOPHARYNGITIS [None]
  - DRUG INEFFECTIVE [None]
  - ARTHRALGIA [None]
